FAERS Safety Report 6538735-7 (Version None)
Quarter: 2010Q1

REPORT INFORMATION
  Report Type: 
  Country: None (occurrence: None)
  Receive Date: 20100114
  Receipt Date: 20100114
  Transmission Date: 20100710
  Serious: Yes (Other)
  Sender: FDA-Public Use
  Company Number: None

PATIENT
  Age: 55 Year
  Sex: Female
  Weight: 63.5036 kg

DRUGS (1)
  1. BONIVA [Suspect]
     Indication: OSTEOPENIA
     Dosage: 150 MG FOR 7 MONTHS MONTHLY
     Dates: start: 20090523, end: 20091123

REACTIONS (11)
  - ABASIA [None]
  - ACTIVITIES OF DAILY LIVING IMPAIRED [None]
  - BONE PAIN [None]
  - DYSPEPSIA [None]
  - DYSSTASIA [None]
  - HAEMOGLOBIN DECREASED [None]
  - MOVEMENT DISORDER [None]
  - PAIN IN JAW [None]
  - PLATELET COUNT DECREASED [None]
  - POISONING [None]
  - SENSITIVITY OF TEETH [None]
